FAERS Safety Report 6784601-1 (Version None)
Quarter: 2010Q2

REPORT INFORMATION
  Report Type: 
  Country: None (occurrence: None)
  Receive Date: 20100622
  Receipt Date: 20100611
  Transmission Date: 20101027
  Serious: Yes (Death, Hospitalization)
  Sender: FDA-Public Use
  Company Number: A0865985A

PATIENT
  Age: 55 Year
  Sex: Female

DRUGS (13)
  1. ZOFRAN [Suspect]
     Dosage: 8MG AS REQUIRED
     Route: 048
  2. ONDANSETRON [Suspect]
     Dosage: 5ML EVERY 3 WEEKS
     Route: 042
     Dates: start: 20100503
  3. TYLENOL [Concomitant]
  4. BENADRYL [Concomitant]
  5. ALOXI [Concomitant]
  6. DECADRON [Concomitant]
  7. EMEND [Concomitant]
  8. NEULASTA [Concomitant]
  9. OXYCONTIN [Concomitant]
  10. MYCOSTATIN [Concomitant]
  11. COMPAZINE [Concomitant]
  12. LOMOTIL [Concomitant]
  13. ZANTAC [Concomitant]

REACTIONS (3)
  - MALIGNANT MELANOMA [None]
  - METASTASES TO CENTRAL NERVOUS SYSTEM [None]
  - NEOPLASM MALIGNANT [None]
